FAERS Safety Report 19804864 (Version 1)
Quarter: 2021Q3

REPORT INFORMATION
  Report Type: Spontaneous
  Country: US (occurrence: US)
  Receive Date: 20210908
  Receipt Date: 20210908
  Transmission Date: 20211014
  Serious: No
  Sender: FDA-Public Use
  Company Number: US-PFIZER INC-2021458644

PATIENT
  Age: 63 Year
  Sex: Female
  Weight: 58.29 kg

DRUGS (7)
  1. PREGABALIN. [Suspect]
     Active Substance: PREGABALIN
     Dosage: 75 MG, 3X/DAY
     Dates: start: 20210512, end: 20210616
  2. LYRICA [Suspect]
     Active Substance: PREGABALIN
     Indication: COMPLEX REGIONAL PAIN SYNDROME
     Dosage: UNABLE TO PROVIDE
  3. LYRICA [Suspect]
     Active Substance: PREGABALIN
     Dosage: 75 MG THREE TIMES A DAY
  4. PREGABALIN. [Suspect]
     Active Substance: PREGABALIN
     Indication: COMPLEX REGIONAL PAIN SYNDROME
     Dosage: 75MG, THREE TIMES A DAY BY MOUTH
  5. LYRICA [Suspect]
     Active Substance: PREGABALIN
     Indication: COMPLEX REGIONAL PAIN SYNDROME
     Dosage: 75MG, THREE TIMES A DAY BY MOUTH
     Dates: start: 20141007
  6. PREGABALIN. [Suspect]
     Active Substance: PREGABALIN
     Indication: COMPLEX REGIONAL PAIN SYNDROME
     Dosage: 75MG, 1 CAPSULE BY MOUTH IN THE MORNING, 2 CAPSULES BY MOUTH IN THE EVENING. ( 3 CAPSULES A DAY)
  7. LYRICA CR [Suspect]
     Active Substance: PREGABALIN
     Indication: COMPLEX REGIONAL PAIN SYNDROME
     Dosage: 82.5MG, THREE TIMES A DAY BY MOUTH
     Dates: start: 202101

REACTIONS (10)
  - COVID-19 [Recovered/Resolved]
  - Fatigue [Unknown]
  - Rash [Unknown]
  - Paraesthesia [Unknown]
  - Hypoacusis [Unknown]
  - Off label use [Unknown]
  - Urticaria [Recovering/Resolving]
  - Insomnia [Unknown]
  - Thinking abnormal [Unknown]
  - Discontinued product administered [Unknown]

NARRATIVE: CASE EVENT DATE: 20140807
